FAERS Safety Report 12839991 (Version 1)
Quarter: 2016Q4

REPORT INFORMATION
  Report Type: Spontaneous
  Country: SE (occurrence: SE)
  Receive Date: 20161012
  Receipt Date: 20161012
  Transmission Date: 20170207
  Serious: Yes (Other)
  Sender: FDA-Public Use
  Company Number: SE-PFIZER INC-2016470931

PATIENT
  Sex: Male

DRUGS (1)
  1. METHOTREXATE SODIUM. [Suspect]
     Active Substance: METHOTREXATE SODIUM

REACTIONS (5)
  - Device related infection [Unknown]
  - Thrombocytopenia [Unknown]
  - Haemoglobin decreased [Unknown]
  - Staphylococcal infection [Unknown]
  - Bone marrow toxicity [Unknown]
